FAERS Safety Report 6361321-9 (Version None)
Quarter: 2009Q3

REPORT INFORMATION
  Report Type: 
  Country: None (occurrence: None)
  Receive Date: 20090918
  Receipt Date: 20090915
  Transmission Date: 20100115
  Serious: Yes (Hospitalization)
  Sender: FDA-Public Use
  Company Number: A0801199A

PATIENT
  Age: 45 Year
  Sex: Male

DRUGS (16)
  1. AVANDIA [Suspect]
     Indication: DIABETES MELLITUS
     Dosage: 8MG PER DAY
     Route: 048
     Dates: start: 20000701, end: 20070201
  2. SIMVASTATIN [Concomitant]
  3. METFORMIN HCL [Concomitant]
  4. GLYBURIDE [Concomitant]
  5. LOPRESSOR [Concomitant]
  6. PRINIVIL [Concomitant]
  7. RANITIDINE [Concomitant]
  8. ALBUTEROL [Concomitant]
  9. PRILOSEC [Concomitant]
  10. METOPROLOL TARTRATE [Concomitant]
  11. SINGULAIR [Concomitant]
  12. NABUMETONE [Concomitant]
  13. DIABETA [Concomitant]
  14. REZULIN [Concomitant]
  15. GLUCOPHAGE [Concomitant]
  16. VIOXX [Concomitant]

REACTIONS (2)
  - CORONARY ARTERY DISEASE [None]
  - MYOCARDIAL INFARCTION [None]
